FAERS Safety Report 10060692 (Version 5)
Quarter: 2014Q4

REPORT INFORMATION
  Report Type: Spontaneous
  Country: CN (occurrence: CN)
  Receive Date: 20140404
  Receipt Date: 20141024
  Transmission Date: 20150528
  Serious: Yes (Other)
  Sender: FDA-Public Use
  Company Number: PHHY2014CN033273

PATIENT
  Age: 8 Year

DRUGS (1)
  1. SANDIMMUNE NEORAL [Suspect]
     Active Substance: CYCLOSPORINE
     Indication: PRODUCT USED FOR UNKNOWN INDICATION
     Dosage: 5ML: 250MG (1 DF)
     Route: 042
     Dates: start: 20140318, end: 20140403

REACTIONS (6)
  - Blood pressure decreased [Unknown]
  - Oxygen saturation decreased [Unknown]
  - Hypersensitivity [Unknown]
  - Shock [Unknown]
  - Chest discomfort [Unknown]
  - Dyspnoea [Unknown]

NARRATIVE: CASE EVENT DATE: 20140318
